FAERS Safety Report 9221252 (Version 2)
Quarter: 2013Q3

REPORT INFORMATION
  Report Type: Report from Study
  Country: AU (occurrence: AU)
  Receive Date: 20130410
  Receipt Date: 20130924
  Transmission Date: 20140515
  Serious: Yes (Hospitalization)
  Sender: FDA-Public Use
  Company Number: AU-BIOGENIDEC-2013BI003503

PATIENT
  Age: 43 Year
  Sex: Male
  Weight: 64 kg

DRUGS (2)
  1. BG00012 [Suspect]
     Indication: MULTIPLE SCLEROSIS
     Dates: start: 20100318
  2. ZOLOFT [Concomitant]
     Indication: DEPRESSION
     Dates: start: 20121220

REACTIONS (1)
  - Serositis [Not Recovered/Not Resolved]
